FAERS Safety Report 7958997-9 (Version None)
Quarter: 2011Q4

REPORT INFORMATION
  Report Type: 
  Country: None (occurrence: None)
  Receive Date: 20111206
  Receipt Date: 20111205
  Transmission Date: 20120403
  Serious: Yes (Hospitalization, Other)
  Sender: FDA-Public Use
  Company Number: US-ABBOTT-11P-163-0875644-00

PATIENT
  Sex: Female
  Weight: 78.542 kg

DRUGS (4)
  1. HUMIRA [Suspect]
     Dates: start: 20110901
  2. HUMIRA [Suspect]
     Indication: RHEUMATOID ARTHRITIS
     Dates: end: 20110901
  3. HUMIRA [Suspect]
  4. ASPIRIN [Concomitant]
     Indication: CORONARY ARTERY BYPASS

REACTIONS (5)
  - ARTHRALGIA [None]
  - LUNG DISORDER [None]
  - DRUG EFFECT DECREASED [None]
  - ARTHRITIS [None]
  - PRODUCTIVE COUGH [None]
